FAERS Safety Report 8292395 (Version 2)
Quarter: 2015Q1

REPORT INFORMATION
  Report Type: Spontaneous
  Country: US (occurrence: None)
  Receive Date: 20111209
  Receipt Date: 20150226
  Transmission Date: 20150721
  Serious: Yes (Hospitalization, Other)
  Sender: FDA-Public Use
  Company Number: TPA2011A08079

PATIENT
  Age: 79 Year
  Sex: Female
  Weight: 81.65 kg

DRUGS (10)
  1. HYZAAR (HYDROCHLOROTHIAZIDE, LOSARTAN POTASSIUM) [Concomitant]
  2. LORTAB (PARACETAMOL, HYDROCODONE BITARTRATE) [Concomitant]
  3. AMLODIPINE [Concomitant]
     Active Substance: AMLODIPINE BESYLATE
  4. ACTOPLUS MET [Suspect]
     Active Substance: METFORMIN HYDROCHLORIDE\PIOGLITAZONE HYDROCHLORIDE
     Indication: TYPE 2 DIABETES MELLITUS
     Dosage: 15 MG /500 MG, 2 IN 1 D, PER ORAL
     Route: 048
     Dates: start: 20071113, end: 20111202
  5. METFORMIN [Concomitant]
     Active Substance: METFORMIN HYDROCHLORIDE
  6. NORVASC [Concomitant]
     Active Substance: AMLODIPINE BESYLATE
  7. KEFLEX [Concomitant]
     Active Substance: CEPHALEXIN
  8. ELAVIL [Concomitant]
     Active Substance: AMITRIPTYLINE HYDROCHLORIDE
  9. GLYBURIDE. [Concomitant]
     Active Substance: GLYBURIDE
  10. TIMOLOL [Concomitant]
     Active Substance: TIMOLOL

REACTIONS (4)
  - Pulmonary oedema [None]
  - Haematuria [None]
  - Abdominal pain [None]
  - Bladder transitional cell carcinoma [None]

NARRATIVE: CASE EVENT DATE: 20101111
